FAERS Safety Report 9768126 (Version 1)
Quarter: 2013Q4

REPORT INFORMATION
  Report Type: Spontaneous
  Country: CA (occurrence: CA)
  Receive Date: 20131217
  Receipt Date: 20131217
  Transmission Date: 20140711
  Serious: Yes (Hospitalization)
  Sender: FDA-Public Use
  Company Number: CA-GLAXOSMITHKLINE-A1052752A

PATIENT
  Age: 14 Year
  Sex: Male

DRUGS (3)
  1. ONDANSETRON [Suspect]
     Indication: CYCLIC VOMITING SYNDROME
     Dosage: 8MG SEE DOSAGE TEXT
     Route: 048
  2. AMITRIPTYLINE [Concomitant]
     Dosage: 37.5MG AT NIGHT
     Dates: start: 2006
  3. ANTI-HYPERTENSIVE [Concomitant]
     Indication: HYPERTENSION

REACTIONS (3)
  - Cyclic vomiting syndrome [Unknown]
  - Oesophagitis [Unknown]
  - Off label use [Unknown]
